FAERS Safety Report 15575405 (Version 3)
Quarter: 2018Q4

REPORT INFORMATION
  Report Type: Report from Study
  Country: None (occurrence: AR)
  Receive Date: 20181101
  Receipt Date: 20181121
  Transmission Date: 20190205
  Serious: Yes (Other)
  Sender: FDA-Public Use
  Company Number: AR-ABBVIE-18K-007-2539089-00

PATIENT
  Age: 48 Year
  Sex: Female

DRUGS (1)
  1. HUMIRA [Suspect]
     Active Substance: ADALIMUMAB
     Indication: RHEUMATOID ARTHRITIS
     Route: 058
     Dates: start: 20180927

REACTIONS (11)
  - Dry eye [Not Recovered/Not Resolved]
  - Visual impairment [Unknown]
  - Limb discomfort [Unknown]
  - Vision blurred [Not Recovered/Not Resolved]
  - Pain in extremity [Unknown]
  - Eye discharge [Unknown]
  - Heart rate decreased [Unknown]
  - Fatigue [Unknown]
  - Musculoskeletal chest pain [Unknown]
  - Pallor [Unknown]
  - Rheumatoid arthritis [Unknown]

NARRATIVE: CASE EVENT DATE: 2018
